FAERS Safety Report 8152623-4 (Version None)
Quarter: 2012Q1

REPORT INFORMATION
  Report Type: 
  Country: None (occurrence: None)
  Receive Date: 20120221
  Receipt Date: 20120213
  Transmission Date: 20120608
  Serious: Yes (Other)
  Sender: FDA-Public Use
  Company Number: ES-JNJFOC-20120208132

PATIENT
  Age: 84 Year
  Sex: Female

DRUGS (1)
  1. GALANTAMINE HYDROBROMIDE [Suspect]
     Indication: DEMENTIA ALZHEIMER'S TYPE
     Route: 048
     Dates: start: 20111215, end: 20120103

REACTIONS (5)
  - TACHYARRHYTHMIA [None]
  - HYPERTENSION [None]
  - DECREASED APPETITE [None]
  - WEIGHT DECREASED [None]
  - ASTHENIA [None]
